FAERS Safety Report 9625061 (Version 2)
Quarter: 2013Q4

REPORT INFORMATION
  Report Type: Spontaneous
  Country: HU (occurrence: HU)
  Receive Date: 20131016
  Receipt Date: 20131016
  Transmission Date: 20140711
  Serious: Yes (Other)
  Sender: FDA-Public Use
  Company Number: HU-AMGEN-HUNSP2013048409

PATIENT
  Age: 52 Year
  Sex: Female

DRUGS (12)
  1. PROLIA [Suspect]
     Indication: OSTEOPOROSIS
     Dosage: 60 MG, UNK
     Route: 058
     Dates: start: 20130617
  2. METFOGAMMA [Concomitant]
     Indication: DIABETES MELLITUS
     Dosage: 850 MG, BID
     Route: 048
  3. CITROCALCIO [Concomitant]
     Indication: OSTEOPOROSIS
     Dosage: 200 MG, BID
     Route: 048
  4. VITAMIN D                          /00107901/ [Concomitant]
     Dosage: UNK UNK, QD
  5. DIO [Concomitant]
     Dosage: 600 MG, QD
  6. CITALOPRAM [Concomitant]
     Indication: DEPRESSION
     Dosage: 10 MG, QD
     Route: 048
  7. LIPIDIL [Concomitant]
     Indication: HYPERLIPIDAEMIA
     Dosage: 2000 MG, QD
     Route: 048
  8. OMEGA 3                            /01333901/ [Concomitant]
     Dosage: 1000 MG, QD
  9. PROENZI 3 [Concomitant]
     Dosage: UNK UNK, QD
  10. BONVIVA [Concomitant]
     Dosage: UNK
     Route: 042
     Dates: start: 20130110
  11. DIOSMIN [Concomitant]
     Dosage: 600 MG, QD
  12. COLECALCIFEROL [Concomitant]
     Indication: OSTEOPOROSIS
     Dosage: 1000NE, QD
     Route: 048

REACTIONS (15)
  - Eye oedema [Unknown]
  - Angioedema [Unknown]
  - Oedema [Not Recovered/Not Resolved]
  - Eyelid oedema [Not Recovered/Not Resolved]
  - Local swelling [Not Recovered/Not Resolved]
  - Erysipelas [Unknown]
  - Swelling face [Not Recovered/Not Resolved]
  - Drug hypersensitivity [Not Recovered/Not Resolved]
  - Eye pain [Unknown]
  - Rhinorrhoea [Unknown]
  - Influenza like illness [Unknown]
  - Bloody discharge [Unknown]
  - Feeling abnormal [Unknown]
  - Feeling hot [Unknown]
  - Hypersensitivity [Unknown]
